FAERS Safety Report 10790367 (Version 3)
Quarter: 2015Q2

REPORT INFORMATION
  Report Type: Spontaneous
  Country: BR (occurrence: BR)
  Receive Date: 20150212
  Receipt Date: 20150511
  Transmission Date: 20150821
  Serious: Yes (Other)
  Sender: FDA-Public Use
  Company Number: BR-SA-2015SA012019

PATIENT
  Age: 32 Year
  Sex: Female
  Weight: 92 kg

DRUGS (3)
  1. ASPIRIN. [Concomitant]
     Active Substance: ASPIRIN
     Indication: HYPERTENSION
     Dosage: STARTED TO TAKE IN THE 11TH WEEK?STRENGTH 500MG
     Route: 048
  2. METHYLDOPA. [Concomitant]
     Active Substance: METHYLDOPA
     Indication: HYPERTENSION
     Dosage: MORE THAN 10N WEEKS?STRENGTH: 500MG
     Route: 048
  3. CLEXANE [Suspect]
     Active Substance: ENOXAPARIN SODIUM
     Indication: HYPERCOAGULATION
     Dosage: DOSE-1APPLICATION OF 20MG UPTO 45 DAYS OF DELIVERY?FORM-SYRINGE?ROUTE-IN THE THIGH
     Route: 058
     Dates: end: 2015

REACTIONS (7)
  - Injection site haemorrhage [Recovered/Resolved]
  - Injection site reaction [Unknown]
  - Injection site hypersensitivity [Unknown]
  - Complication of pregnancy [Unknown]
  - Injection site pruritus [Unknown]
  - Injection site erythema [Unknown]
  - Exposure during pregnancy [Unknown]

NARRATIVE: CASE EVENT DATE: 201501
